FAERS Safety Report 9778103 (Version 1)
Quarter: 2013Q4

REPORT INFORMATION
  Report Type: Spontaneous
  Country: JP (occurrence: JP)
  Receive Date: 20131223
  Receipt Date: 20131223
  Transmission Date: 20140711
  Serious: Yes (Death, Hospitalization, Other)
  Sender: FDA-Public Use
  Company Number: PHHY2013JP148513

PATIENT
  Age: 66 Year
  Sex: Male

DRUGS (7)
  1. CICLOSPORIN [Suspect]
     Indication: THROMBOCYTOPENIA
     Route: 048
  2. CICLOSPORIN [Suspect]
     Indication: GENERALISED OEDEMA
  3. CICLOSPORIN [Suspect]
     Indication: PYREXIA
  4. CICLOSPORIN [Suspect]
     Indication: FIBROSIS
  5. CICLOSPORIN [Suspect]
     Indication: CASTLEMAN^S DISEASE
  6. RITUXIMAB [Concomitant]
  7. TOCILIZUMAB [Concomitant]
     Indication: CASTLEMAN^S DISEASE

REACTIONS (3)
  - Multi-organ failure [Fatal]
  - Cholecystitis [Unknown]
  - Sepsis [Unknown]
